FAERS Safety Report 15307602 (Version 1)
Quarter: 2018Q4

REPORT INFORMATION
  Report Type: Spontaneous
  Country: DE (occurrence: DE)
  Receive Date: 20180822
  Receipt Date: 20180822
  Transmission Date: 20190204
  Serious: Yes (Hospitalization)
  Sender: FDA-Public Use
  Company Number: DE-TEVA-2018-DE-945260

PATIENT
  Age: 6 Month
  Sex: Female
  Weight: 6.8 kg

DRUGS (1)
  1. HYDROCORTISON CREME 1% [Suspect]
     Active Substance: HYDROCORTISONE
     Indication: DERMATITIS ATOPIC
     Dosage: 2 DOSAGE FORMS DAILY;
     Route: 061

REACTIONS (3)
  - Superinfection bacterial [Recovered/Resolved]
  - Streptococcal infection [Recovered/Resolved]
  - Staphylococcal infection [Recovered/Resolved]

NARRATIVE: CASE EVENT DATE: 20180617
